FAERS Safety Report 17314726 (Version 1)
Quarter: 2020Q1

REPORT INFORMATION
  Report Type: Spontaneous
  Country: US (occurrence: US)
  Receive Date: 20200123
  Receipt Date: 20200123
  Transmission Date: 20200409
  Serious: Yes (Disabling, Other)
  Sender: FDA-Public Use
  Company Number: None

PATIENT
  Sex: Female
  Weight: 74.25 kg

DRUGS (14)
  1. CYTOMEL [Concomitant]
     Active Substance: LIOTHYRONINE SODIUM
  2. BENNEFIBER [Concomitant]
  3. QUINAPRIL. [Concomitant]
     Active Substance: QUINAPRIL
  4. MELOXICAM. [Concomitant]
     Active Substance: MELOXICAM
  5. ESTRADIOL. [Concomitant]
     Active Substance: ESTRADIOL
  6. SYNTHROID [Concomitant]
     Active Substance: LEVOTHYROXINE SODIUM
  7. VITAMIN C [Concomitant]
     Active Substance: ASCORBIC ACID
  8. ADULT MUT-VIT [Concomitant]
  9. EVENING PRIMROSE OIL [Concomitant]
     Active Substance: EVENING PRIMROSE OIL\HERBALS
  10. TEA [Concomitant]
     Active Substance: TEA LEAF
  11. SENNA [Concomitant]
     Active Substance: SENNA LEAF\SENNOSIDES\SENNOSIDES A AND B
  12. VIT D [Concomitant]
     Active Substance: VITAMIN D NOS
  13. REPATHA [Suspect]
     Active Substance: EVOLOCUMAB
     Indication: BLOOD CHOLESTEROL INCREASED
     Dosage: ?          QUANTITY:1 INJECTION(S);OTHER FREQUENCY:14 DAYS;OTHER ROUTE:INJECTION ON TUMMY 2 INCHES FROM NAVEL?
     Dates: start: 20171005, end: 20180813
  14. CA [Concomitant]

REACTIONS (11)
  - Muscle spasms [None]
  - Injection site inflammation [None]
  - Injection site erythema [None]
  - Injection site warmth [None]
  - Arthralgia [None]
  - Insomnia [None]
  - Malaise [None]
  - Osteoarthritis [None]
  - Spinal osteoarthritis [None]
  - Injection site mass [None]
  - Muscular weakness [None]
